FAERS Safety Report 7810700-9 (Version None)
Quarter: 2011Q4

REPORT INFORMATION
  Report Type: 
  Country: None (occurrence: None)
  Receive Date: 20111013
  Receipt Date: 20111003
  Transmission Date: 20120403
  Serious: Yes (Hospitalization)
  Sender: FDA-Public Use
  Company Number: IT-BRISTOL-MYERS SQUIBB COMPANY-16155780

PATIENT
  Age: 58 Year
  Sex: Male

DRUGS (1)
  1. ERBITUX [Suspect]
     Indication: OROPHARYNGEAL CANCER STAGE UNSPECIFIED
     Dosage: THERAPY STOP DATE:28AUG2011.RESTARTED:03OCT2011-ONGING.
     Route: 042
     Dates: start: 20110715

REACTIONS (4)
  - HEADACHE [None]
  - PALPITATIONS [None]
  - BUNDLE BRANCH BLOCK LEFT [None]
  - CHEST PAIN [None]
